FAERS Safety Report 7215563-0 (Version None)
Quarter: 2011Q1

REPORT INFORMATION
  Report Type: 
  Country: None (occurrence: None)
  Receive Date: 20110107
  Receipt Date: 20110104
  Transmission Date: 20110831
  Serious: Yes (Other)
  Sender: FDA-Public Use
  Company Number: GB-ROCHE-750354

PATIENT
  Age: 65 Year
  Sex: Male

DRUGS (11)
  1. COTRIM [Concomitant]
     Dates: start: 20071101
  2. METHYLPREDNISOLONE [Concomitant]
     Indication: VASCULITIS
     Route: 042
  3. MYCOPHENOLATE MOFETIL [Suspect]
     Indication: RENAL VASCULITIS
     Route: 065
     Dates: start: 20080201
  4. RITUXIMAB [Suspect]
     Indication: RENAL VASCULITIS
     Route: 065
     Dates: start: 20080901, end: 20081001
  5. AZATHIOPRINE [Concomitant]
     Dates: end: 20080701
  6. MYCOPHENOLATE MOFETIL [Suspect]
     Route: 065
     Dates: start: 20080701, end: 20080901
  7. PREDNISOLONE [Suspect]
     Route: 065
     Dates: start: 20080901
  8. RITUXIMAB [Suspect]
     Route: 065
     Dates: start: 20090501, end: 20091201
  9. MYCOPHENOLATE MOFETIL [Suspect]
     Route: 065
  10. PREDNISOLONE [Suspect]
     Indication: RENAL VASCULITIS
     Route: 065
     Dates: start: 20071101
  11. CYCLOPHOSPHAMIDE [Concomitant]
     Dosage: DOSAGES/INTERVAL: 1 DAYS
     Dates: start: 20071101, end: 20080401

REACTIONS (4)
  - MYELITIS TRANSVERSE [None]
  - VASCULITIS [None]
  - CUSHING'S SYNDROME [None]
  - LOWER RESPIRATORY TRACT INFECTION [None]
